FAERS Safety Report 7583435-8 (Version None)
Quarter: 2011Q2

REPORT INFORMATION
  Report Type: 
  Country: None (occurrence: None)
  Receive Date: 20110630
  Receipt Date: 20110623
  Transmission Date: 20111010
  Serious: Yes (Other)
  Sender: FDA-Public Use
  Company Number: AU-BAXTER-2011BH021035

PATIENT
  Sex: Male

DRUGS (1)
  1. ADVATE [Suspect]
     Indication: COAGULATION FACTOR VIII LEVEL
     Dosage: DOSE UNIT:UNKNOWN
     Route: 065

REACTIONS (1)
  - HAEMARTHROSIS [None]
